FAERS Safety Report 4741121-3 (Version None)
Quarter: 2005Q3

REPORT INFORMATION
  Report Type: 
  Country: None (occurrence: None)
  Receive Date: 20050803
  Receipt Date: 20041129
  Transmission Date: 20060218
  Serious: Yes (Other)
  Sender: FDA-Public Use
  Company Number: 2004-11-1806

PATIENT
  Age: 55 Year
  Sex: Female
  Weight: 66.6788 kg

DRUGS (3)
  1. INTRON A [Suspect]
     Indication: MYELOPROLIFERATIVE DISORDER
     Dosage: 3 MIU TIW
     Dates: start: 20010401
  2. COUMADIN [Concomitant]
  3. NORTRIPTYLINE HCL [Concomitant]

REACTIONS (5)
  - DRUG ADMINISTRATION ERROR [None]
  - HEADACHE [None]
  - INFLUENZA LIKE ILLNESS [None]
  - MALAISE [None]
  - THROMBOSIS [None]
